FAERS Safety Report 17338791 (Version 1)
Quarter: 2020Q1

REPORT INFORMATION
  Report Type: Spontaneous
  Country: US (occurrence: US)
  Receive Date: 20200129
  Receipt Date: 20200129
  Transmission Date: 20200409
  Serious: No
  Sender: FDA-Public Use
  Company Number: US-ALLERGAN-1945569US

PATIENT
  Age: 72 Year
  Sex: Male

DRUGS (1)
  1. PREDNISOLONE ACETATE, 1.0% [Suspect]
     Active Substance: PREDNISOLONE ACETATE
     Indication: POSTOPERATIVE CARE
     Dosage: 1 GTT, Q6HR
     Route: 047
     Dates: start: 20191003

REACTIONS (6)
  - Incorrect dose administered [Unknown]
  - Product dose omission [Unknown]
  - Product packaging issue [Unknown]
  - Patient dissatisfaction with device [Unknown]
  - Product packaging quantity issue [Unknown]
  - Product dropper issue [Unknown]

NARRATIVE: CASE EVENT DATE: 20191104
